FAERS Safety Report 4434992-1 (Version None)
Quarter: 2004Q3

REPORT INFORMATION
  Report Type: 
  Country: None (occurrence: None)
  Receive Date: 20040726
  Receipt Date: 20040528
  Transmission Date: 20050211
  Serious: No
  Sender: FDA-Public Use
  Company Number: USA040360472

PATIENT
  Age: 79 Year
  Sex: Female
  Weight: 49 kg

DRUGS (10)
  1. FORTEO [Suspect]
     Indication: OSTEOPOROSIS
     Dosage: 20 UG/L DAY
     Dates: start: 20040226
  2. CALCIUM CARBONATE + VITAMIN D [Concomitant]
  3. ALTACE [Concomitant]
  4. ASPIRIN [Concomitant]
  5. ALPRAZOLAM [Concomitant]
  6. CITRUCEL (METHYLCELLULOSE) [Concomitant]
  7. LEVSIN (HYOSCYAMINE SULFATE) [Concomitant]
  8. ALBUTEROL [Concomitant]
  9. LIDODERM (LIDOCAINE) [Concomitant]
  10. FLOVENT [Concomitant]

REACTIONS (8)
  - ARTHRALGIA [None]
  - ARTHRITIS [None]
  - BURNING SENSATION [None]
  - CARPAL TUNNEL SYNDROME [None]
  - JOINT DISLOCATION [None]
  - MUSCULOSKELETAL STIFFNESS [None]
  - PAIN [None]
  - PARAESTHESIA [None]
